FAERS Safety Report 4528055-4 (Version None)
Quarter: 2004Q4

REPORT INFORMATION
  Report Type: 
  Country: None (occurrence: None)
  Receive Date: 20041123
  Receipt Date: 20040519
  Transmission Date: 20050328
  Serious: Yes (Other)
  Sender: FDA-Public Use
  Company Number: 2004033162

PATIENT
  Age: 85 Year
  Sex: Female

DRUGS (1)
  1. LIPITOR [Suspect]
     Indication: BLOOD CHOLESTEROL
     Dosage: ORAL
     Route: 048
     Dates: end: 20040101

REACTIONS (6)
  - BLOOD CHOLESTEROL ABNORMAL [None]
  - DIFFICULTY IN WALKING [None]
  - FAECES DISCOLOURED [None]
  - FALL [None]
  - LIMB DISCOMFORT [None]
  - RHABDOMYOLYSIS [None]
